FAERS Safety Report 6611253-3 (Version None)
Quarter: 2010Q1

REPORT INFORMATION
  Report Type: 
  Country: None (occurrence: None)
  Receive Date: 20100301
  Receipt Date: 20100301
  Transmission Date: 20100710
  Serious: Yes (Hospitalization)
  Sender: FDA-Public Use
  Company Number: None

PATIENT
  Sex: Female
  Weight: 77 kg

DRUGS (5)
  1. PEG-L-ASPARAGINASE (K-H) [Suspect]
     Dosage: 4457 IU
  2. VINCRISTINE SULFATE [Suspect]
     Dosage: 6 MG
  3. CYTARABINE [Suspect]
     Dosage: 70 MG
  4. DAUNORUBICIN HCL [Suspect]
     Dosage: 146 MG
  5. METHOTREXATE [Suspect]
     Dosage: 60 MG

REACTIONS (8)
  - BILE DUCT OBSTRUCTION [None]
  - GASTROINTESTINAL HAEMORRHAGE [None]
  - HEPATIC FIBROSIS [None]
  - HEPATIC STEATOSIS [None]
  - HYPERBILIRUBINAEMIA [None]
  - INFLAMMATION [None]
  - PULMONARY EMBOLISM [None]
  - TRANSVERSE SINUS THROMBOSIS [None]
